FAERS Safety Report 9424352 (Version 1)
Quarter: 2013Q3

REPORT INFORMATION
  Report Type: Report from Study
  Country: KR (occurrence: KR)
  Receive Date: 20130729
  Receipt Date: 20130729
  Transmission Date: 20140515
  Serious: Yes (Death, Hospitalization)
  Sender: FDA-Public Use
  Company Number: KR-ROCHE-585085

PATIENT
  Age: 71 Year
  Sex: Male
  Weight: 70 kg

DRUGS (11)
  1. BEVACIZUMAB [Suspect]
     Indication: COLORECTAL CANCER METASTATIC
     Dosage: DOSING FORM IS REPORTED AS VIAL.
     Route: 042
     Dates: start: 20080822, end: 20080916
  2. CAPECITABINE [Suspect]
     Indication: COLORECTAL CANCER METASTATIC
     Dosage: DOSING FORM IS REPORTED AS FILM COATED TABLET.
     Route: 048
     Dates: start: 20080822, end: 20080916
  3. ASPIRIN [Concomitant]
     Route: 065
     Dates: start: 20080823, end: 20080903
  4. HYDROCHLOROTHIAZIDE [Concomitant]
     Route: 065
     Dates: start: 20080823, end: 20080903
  5. HYDROCHLOROTHIAZIDE [Concomitant]
     Route: 065
     Dates: start: 20080823, end: 20080903
  6. DOMPERIDONE [Concomitant]
     Route: 065
     Dates: start: 20080823, end: 20080903
  7. NICORANDIL [Concomitant]
     Route: 065
     Dates: start: 20080823, end: 20080903
  8. OXYCODONE HYDROCHLORIDE [Concomitant]
     Route: 065
     Dates: start: 20080823, end: 20080903
  9. DEXAMETHASONE [Concomitant]
     Route: 065
     Dates: start: 20080823, end: 20080825
  10. ZOLPIDEM [Concomitant]
     Dosage: DRUG NAME REPORTED IS ZOLIPIDEM.
     Route: 065
     Dates: start: 20080823, end: 20080903
  11. LOSARTAN [Concomitant]
     Route: 065
     Dates: start: 20080823, end: 20080903

REACTIONS (2)
  - Pulmonary sepsis [Fatal]
  - Abdominal pain [Fatal]
